FAERS Safety Report 5848161-1 (Version None)
Quarter: 2008Q3

REPORT INFORMATION
  Report Type: 
  Country: None (occurrence: None)
  Receive Date: 20080818
  Receipt Date: 20080808
  Transmission Date: 20090109
  Serious: Yes (Hospitalization)
  Sender: FDA-Public Use
  Company Number: A0742919A

PATIENT
  Age: 41 Year
  Sex: Female

DRUGS (2)
  1. COMBIVIR [Suspect]
     Indication: DRUG USE FOR UNKNOWN INDICATION
     Dosage: 2TAB PER DAY
     Route: 048
  2. REYATAZ [Suspect]
     Dosage: 400MG PER DAY
     Route: 048

REACTIONS (5)
  - ANAEMIA [None]
  - ANOREXIA [None]
  - ASTHENIA [None]
  - FATIGUE [None]
  - VERTIGO [None]
